FAERS Safety Report 15386950 (Version 1)
Quarter: 2018Q3

REPORT INFORMATION
  Report Type: Spontaneous
  Country: FR (occurrence: FR)
  Receive Date: 20180914
  Receipt Date: 20180914
  Transmission Date: 20181010
  Serious: Yes (Hospitalization)
  Sender: FDA-Public Use
  Company Number: FR-TEVA-2018-FR-954799

PATIENT
  Age: 25 Year
  Sex: Male

DRUGS (8)
  1. THERAPEUTIC RADIOPHARMACEUTICALS [Concomitant]
     Active Substance: RADIATION THERAPY
     Dates: start: 20120209, end: 20120322
  2. TEMOZOLOMIDE. [Suspect]
     Active Substance: TEMOZOLOMIDE
     Indication: PRODUCT USED FOR UNKNOWN INDICATION
     Dosage: 280 MILLIGRAM DAILY; START DATE: FROM 20?JAN?2012 TO 24?JAN?2012
     Route: 048
     Dates: start: 20120120, end: 20120124
  3. TEMOZOLOMIDE. [Interacting]
     Active Substance: TEMOZOLOMIDE
     Dosage: START DATE: FROM 20?JAN?2012 TO 24?JAN?2012
     Route: 048
     Dates: start: 20120209, end: 20120310
  4. ZYRTEC [Concomitant]
     Active Substance: CETIRIZINE HYDROCHLORIDE
     Indication: HYPERSENSITIVITY
     Route: 048
  5. TEGRETOL [Concomitant]
     Active Substance: CARBAMAZEPINE
     Dosage: 600 MILLIGRAM DAILY;
     Route: 048
     Dates: start: 201111, end: 20120216
  6. DEPAKINE CHRONO [Interacting]
     Active Substance: VALPROATE SODIUM
     Route: 048
     Dates: start: 201107, end: 20120331
  7. DEPAKINE CHRONO [Interacting]
     Active Substance: VALPROATE SODIUM
     Indication: PRODUCT USED FOR UNKNOWN INDICATION
     Route: 048
     Dates: start: 20120320, end: 20120331
  8. INIPOMP [Interacting]
     Active Substance: PANTOPRAZOLE SODIUM
     Indication: PRODUCT USED FOR UNKNOWN INDICATION
     Dosage: 20 MILLIGRAM DAILY;
     Route: 048
     Dates: start: 201201, end: 20120320

REACTIONS (5)
  - Thrombocytopenia [Recovered/Resolved]
  - Anaemia [Recovering/Resolving]
  - Agranulocytosis [Recovered/Resolved]
  - Pancytopenia [Recovered/Resolved]
  - Drug interaction [Unknown]

NARRATIVE: CASE EVENT DATE: 20120308
